FAERS Safety Report 16162582 (Version 1)
Quarter: 2019Q2

REPORT INFORMATION
  Report Type: Spontaneous
  Country: GB (occurrence: GB)
  Receive Date: 20190405
  Receipt Date: 20190405
  Transmission Date: 20190711
  Serious: Yes (Death)
  Sender: FDA-Public Use
  Company Number: GB-ASTRAZENECA-2019SE51192

PATIENT
  Age: 67 Year
  Sex: Male

DRUGS (11)
  1. FUROSEMIDE. [Suspect]
     Active Substance: FUROSEMIDE
     Route: 065
  2. XARELTO [Suspect]
     Active Substance: RIVAROXABAN
     Dosage: 20 MG DAILY, WITH FOOD
     Route: 065
  3. SPIRONOLACTONE. [Suspect]
     Active Substance: SPIRONOLACTONE
     Dosage: 2 DF, EACH MORNING
     Route: 048
  4. TIOTROPIUM BROMIDE [Suspect]
     Active Substance: TIOTROPIUM BROMIDE
     Dosage: 10 MICROGRAMS PER INHALATION, 1 - DAILY, AT THE SAME TIME OF DAY.
     Route: 055
  5. SIMVASTATIN. [Suspect]
     Active Substance: SIMVASTATIN
     Route: 065
  6. PARACETAMOL [Suspect]
     Active Substance: ACETAMINOPHEN
     Dosage: 500 MG, ONE TO BE TAKEN EVERY 4-6 HOURS UP TO FOUR TIMES A DAY
     Route: 065
  7. VENTOLIN [Suspect]
     Active Substance: ALBUTEROL SULFATE
     Dosage: 1-4 PUFFS IN VOLUMATIC IF VERY WHEEZY ONLY
     Route: 065
  8. OMEPRAZOLE. [Suspect]
     Active Substance: OMEPRAZOLE
     Route: 048
  9. VITAMIN B NOS [Suspect]
     Active Substance: VITAMIN B
     Route: 065
  10. FERROUS FUMARATE [Suspect]
     Active Substance: FERROUS FUMARATE
     Route: 065
  11. FOSTAIR [Suspect]
     Active Substance: BECLOMETHASONE\FORMOTEROL
     Dosage: 100MICROGRAMS/DOSE 6MICROGRAMS/DOSE, 2 DF, DAILY
     Route: 055

REACTIONS (1)
  - Sudden death [Fatal]
